FAERS Safety Report 4859184-3 (Version None)
Quarter: 2005Q4

REPORT INFORMATION
  Report Type: 
  Country: None (occurrence: None)
  Receive Date: 20051219
  Receipt Date: 20050926
  Transmission Date: 20060501
  Serious: No
  Sender: FDA-Public Use
  Company Number: US-GLAXOSMITHKLINE-A0575824A

PATIENT
  Age: 37 Year
  Sex: Female

DRUGS (1)
  1. NICODERM CQ [Suspect]
     Dates: start: 20050901

REACTIONS (4)
  - DISTURBANCE IN ATTENTION [None]
  - INCREASED APPETITE [None]
  - IRRITABILITY [None]
  - NICOTINE DEPENDENCE [None]
